FAERS Safety Report 24284135 (Version 1)
Quarter: 2024Q3

REPORT INFORMATION
  Report Type: Spontaneous
  Country: US (occurrence: US)
  Receive Date: 20240905
  Receipt Date: 20240905
  Transmission Date: 20241017
  Serious: Yes (Other)
  Sender: GLENMARK
  Company Number: US-GLENMARK PHARMACEUTICALS-2024GMK093649

PATIENT

DRUGS (1)
  1. RYALTRIS [Suspect]
     Active Substance: MOMETASONE FUROATE MONOHYDRATE\OLOPATADINE HYDROCHLORIDE
     Indication: Product used for unknown indication
     Dosage: 2 DOSAGE FORM, BID (INSTILL 2 SPRAYS IN EACH NOSTRIL TWICE DAILY)
     Route: 065
     Dates: start: 20240729

REACTIONS (5)
  - Loss of consciousness [Unknown]
  - Throat tightness [Unknown]
  - Dysphonia [Unknown]
  - Dyspnoea [Unknown]
  - Cough [Unknown]
